FAERS Safety Report 8346633-1 (Version None)
Quarter: 2012Q2

REPORT INFORMATION
  Report Type: 
  Country: None (occurrence: None)
  Receive Date: 20120509
  Receipt Date: 20120504
  Transmission Date: 20120825
  Serious: Yes (Other)
  Sender: FDA-Public Use
  Company Number: PHHY2011CA42709

PATIENT
  Sex: Female

DRUGS (11)
  1. COZAAR [Concomitant]
     Dosage: 100 MG, AM
  2. GABAPENTIN [Concomitant]
     Dosage: 400 MG, Q8H
  3. NEXIUM [Concomitant]
     Dosage: 40 MG, UNK
  4. PRAVASTATIN [Concomitant]
     Dosage: 20 MG, HS
  5. AMITRIPTYLINE HCL [Concomitant]
     Dosage: 10 MG, HS
  6. DOCUSATE [Concomitant]
     Dosage: 100 MG, 2 CAP BID TO QID
  7. ZOLEDRONOC ACID [Suspect]
     Dosage: 5 MG/100 ML
     Route: 042
     Dates: start: 20110620
  8. ZOLEDRONOC ACID [Suspect]
     Indication: OSTEOPOROSIS
     Dosage: 5 MG/100 ML
     Route: 042
     Dates: start: 20100614
  9. VITAMIN D [Concomitant]
     Dosage: 10000 IU,
  10. ELAVIL [Concomitant]
     Dosage: 10 MG, UNK
  11. NOLVADEX [Concomitant]
     Dosage: 20 MG, UNK

REACTIONS (2)
  - ABDOMINAL INFECTION [None]
  - BREAST CANCER [None]
